FAERS Safety Report 22617463 (Version 1)
Quarter: 2023Q2

REPORT INFORMATION
  Report Type: Spontaneous
  Country: DE (occurrence: DE)
  Receive Date: 20230620
  Receipt Date: 20230620
  Transmission Date: 20230721
  Serious: No
  Sender: FDA-Public Use
  Company Number: DE-Desitin-2022-01294

PATIENT
  Age: 32 Year
  Sex: Female

DRUGS (7)
  1. PROPRANOLOL [Suspect]
     Active Substance: PROPRANOLOL HYDROCHLORIDE
     Indication: Myoclonus
     Dosage: UNK, QD (1/DAY),  UP TO 30MG
     Route: 065
  2. DALFAMPRIDINE [Suspect]
     Active Substance: DALFAMPRIDINE
     Indication: Myoclonus
     Dosage: 10 MG, 0.5 DAY, PROLONGED-RELEASE
     Route: 065
  3. TICK-BORNE ENCEPHALITIS VACCINE [Suspect]
     Active Substance: TICK-BORNE ENCEPHALITIS VACCINE
     Indication: Tick-borne encephalitis immunisation
     Dosage: UNK
     Route: 065
  4. CARBAMAZEPINE [Suspect]
     Active Substance: CARBAMAZEPINE
     Indication: Myoclonus
     Dosage: UNK, QD (1/DAY), PROLONGED RELEASE UP TO 600 MG
     Route: 065
     Dates: start: 2020
  5. LEVETIRACETAM [Suspect]
     Active Substance: LEVETIRACETAM
     Indication: Myoclonus
     Dosage: UNK, QD (1/DAY), UP TO 1000MG
     Route: 065
  6. PRIMIDONE [Suspect]
     Active Substance: PRIMIDONE
     Indication: Myoclonus
     Dosage: UNK, QD (1/DAY),UP TO 31.25 MG
     Route: 065
  7. IMMUNOGLOBULINS [Concomitant]
     Indication: Myelitis
     Dosage: 2 G/KG BODY WEIGHT
     Route: 042
     Dates: start: 2020

REACTIONS (3)
  - Drug intolerance [Unknown]
  - Fatigue [Unknown]
  - Off label use [Unknown]

NARRATIVE: CASE EVENT DATE: 20200101
